FAERS Safety Report 12985763 (Version 1)
Quarter: 2016Q4

REPORT INFORMATION
  Report Type: Spontaneous
  Country: US (occurrence: US)
  Receive Date: 20161130
  Receipt Date: 20161130
  Transmission Date: 20170207
  Serious: Yes (Other)
  Sender: FDA-Public Use
  Company Number: US-CLINIGEN GROUP PLC/ CLINIGEN HEALTHCARE LTD-E2B_00000455

PATIENT
  Age: 68 Year
  Sex: Female

DRUGS (4)
  1. ETHYOL [Suspect]
     Active Substance: AMIFOSTINE
     Route: 058
     Dates: start: 20060907, end: 20060907
  2. CISPLATIN. [Concomitant]
     Active Substance: CISPLATIN
  3. ETHYOL [Suspect]
     Active Substance: AMIFOSTINE
     Indication: PRODUCT USED FOR UNKNOWN INDICATION
     Route: 058
     Dates: start: 200609, end: 20060906
  4. RADIATION THERAPY [Concomitant]
     Active Substance: RADIATION THERAPY
     Dates: start: 200609

REACTIONS (6)
  - Injection site haematoma [Not Recovered/Not Resolved]
  - Mucosal inflammation [Recovered/Resolved]
  - Full blood count abnormal [Unknown]
  - Injection site pain [Unknown]
  - Platelet count decreased [Unknown]
  - Injection site necrosis [Not Recovered/Not Resolved]

NARRATIVE: CASE EVENT DATE: 200609
